FAERS Safety Report 6407545-3 (Version None)
Quarter: 2009Q4

REPORT INFORMATION
  Report Type: 
  Country: None (occurrence: None)
  Receive Date: 20091020
  Receipt Date: 20091014
  Transmission Date: 20100525
  Serious: Yes (Death, Other)
  Sender: FDA-Public Use
  Company Number: NL-CELGENEUS-114-20785-05070238

PATIENT

DRUGS (11)
  1. THALOMID [Suspect]
     Indication: MULTIPLE MYELOMA
     Dosage: INDUCTION THERAPY, 200 MG ESCALATED TO 400 MG, QD, WITH VTE PROPHYLAXIS
     Route: 048
  2. THALOMID [Suspect]
     Dosage: MAINTENANCE THERAPY, 50 MG QD, WITHOUT VTE PROPHYLAXIS
     Route: 048
  3. ADRIAMYCIN PFS [Suspect]
     Indication: MULTIPLE MYELOMA
     Route: 051
  4. ADRIAMYCIN PFS [Suspect]
     Route: 051
  5. DEXAMETHASONE 0.5MG TAB [Suspect]
     Indication: MULTIPLE MYELOMA
     Route: 048
  6. DEXAMETHASONE 0.5MG TAB [Suspect]
     Route: 048
  7. CYCLOPHOSPHAMIDE [Suspect]
     Indication: MULTIPLE MYELOMA
     Route: 051
  8. MELPHALAN [Suspect]
     Route: 065
  9. NADROPARINE OR ANTI-XA [Concomitant]
     Indication: PROPHYLAXIS
     Dosage: 2850 IE OR 5700
     Route: 065
  10. NEUPOGEN [Concomitant]
     Indication: DRUG USE FOR UNKNOWN INDICATION
     Route: 065
  11. LOW MOLECULAR WEIGHT HEPARIN [Concomitant]
     Indication: THROMBOSIS PROPHYLAXIS
     Route: 065

REACTIONS (5)
  - DEATH [None]
  - DEEP VEIN THROMBOSIS [None]
  - DRUG TOXICITY [None]
  - EMBOLISM VENOUS [None]
  - PULMONARY EMBOLISM [None]
